FAERS Safety Report 21557040 (Version 1)
Quarter: 2022Q4

REPORT INFORMATION
  Report Type: Report from Study
  Country: US (occurrence: US)
  Receive Date: 20221104
  Receipt Date: 20221104
  Transmission Date: 20230112
  Serious: Yes (Hospitalization)
  Sender: FDA-Public Use
  Company Number: US-GW PHARMA-2022-US-034086

PATIENT
  Sex: Male

DRUGS (2)
  1. EPIDIOLEX [Suspect]
     Active Substance: CANNABIDIOL
     Indication: Epilepsy
     Dosage: 0.5 MILLILITER, BID FOR 7 DAYS
     Route: 048
     Dates: start: 20220916
  2. EPIDIOLEX [Suspect]
     Active Substance: CANNABIDIOL
     Indication: Generalised tonic-clonic seizure
     Dosage: 1 MILLILITER, BID

REACTIONS (4)
  - Hospitalisation [Unknown]
  - Emergency care [Unknown]
  - Weight decreased [Unknown]
  - Off label use [Unknown]
